FAERS Safety Report 4416770-2 (Version None)
Quarter: 2004Q3

REPORT INFORMATION
  Report Type: 
  Country: None (occurrence: None)
  Receive Date: 20040802
  Receipt Date: 20040720
  Transmission Date: 20050211
  Serious: Yes (Hospitalization)
  Sender: FDA-Public Use
  Company Number: 2004-118784-NL

PATIENT
  Age: 72 Year
  Sex: Female

DRUGS (5)
  1. MIRTAZAPINE [Suspect]
     Indication: DEPRESSION
     Dosage: 15 MG QD
     Route: 048
     Dates: end: 20040518
  2. TIANEPTINE [Suspect]
     Indication: DEPRESSION
     Dosage: 1 DF BID
     Route: 048
     Dates: end: 20040518
  3. LANSOPRAZOLE [Concomitant]
  4. DIOVAN HCT [Concomitant]
  5. ZOLPIDEM TARTRATE [Concomitant]

REACTIONS (8)
  - ALANINE AMINOTRANSFERASE INCREASED [None]
  - ASPARTATE AMINOTRANSFERASE INCREASED [None]
  - BLOOD ALKALINE PHOSPHATASE INCREASED [None]
  - BLOOD BILIRUBIN INCREASED [None]
  - GAMMA-GLUTAMYLTRANSFERASE INCREASED [None]
  - LIVER DISORDER [None]
  - PAIN IN EXTREMITY [None]
  - THROMBOCYTOPENIA [None]
